FAERS Safety Report 18317596 (Version 1)
Quarter: 2020Q3

REPORT INFORMATION
  Report Type: Report from Study
  Country: US (occurrence: US)
  Receive Date: 20200928
  Receipt Date: 20200928
  Transmission Date: 20201103
  Serious: Yes (Other)
  Sender: FDA-Public Use
  Company Number: US-AUROBINDO-AUR-APL-2012-03026

PATIENT
  Age: 36 Year
  Sex: Female

DRUGS (1)
  1. MINOCYCLINE [Suspect]
     Active Substance: MINOCYCLINE HYDROCHLORIDE
     Indication: VASCULITIS
     Dosage: UNK
     Route: 065

REACTIONS (2)
  - Polyarteritis nodosa [Unknown]
  - Drug-induced liver injury [Unknown]
